FAERS Safety Report 11362745 (Version 4)
Quarter: 2015Q4

REPORT INFORMATION
  Report Type: Spontaneous
  Country: US (occurrence: US)
  Receive Date: 20150810
  Receipt Date: 20151029
  Transmission Date: 20160304
  Serious: No
  Sender: FDA-Public Use
  Company Number: US-PFIZER INC-2015262815

PATIENT
  Age: 90 Year
  Sex: Male
  Weight: 82 kg

DRUGS (4)
  1. LYRICA [Suspect]
     Active Substance: PREGABALIN
     Indication: PAIN IN EXTREMITY
     Dosage: 2 DF, 1X/DAY
  2. LYRICA [Suspect]
     Active Substance: PREGABALIN
     Dosage: 250 MG, 1X/DAY
  3. LYRICA [Suspect]
     Active Substance: PREGABALIN
     Indication: MUSCLE SPASMS
     Dosage: 50 MG, 4 OR 5 TABLET, 1X/DAY
  4. AMIODARONE [Concomitant]
     Active Substance: AMIODARONE
     Indication: CARDIAC DISORDER
     Dosage: 200 MG, 1X/DAY

REACTIONS (4)
  - Product quality issue [Unknown]
  - Drug ineffective for unapproved indication [Unknown]
  - Insomnia [Unknown]
  - Intentional product misuse [Not Recovered/Not Resolved]
